FAERS Safety Report 8104510-5 (Version None)
Quarter: 2012Q1

REPORT INFORMATION
  Report Type: 
  Country: None (occurrence: None)
  Receive Date: 20120130
  Receipt Date: 20120117
  Transmission Date: 20120608
  Serious: Yes (Other)
  Sender: FDA-Public Use
  Company Number: PHHY2012LT004054

PATIENT
  Age: 57 Year
  Sex: Female

DRUGS (6)
  1. DOXORUBICIN HCL [Concomitant]
     Indication: BREAST CANCER METASTATIC
  2. PAMIDRONATE DISODIUM [Concomitant]
     Indication: BREAST CANCER METASTATIC
     Dosage: 90 MG EVERY 4 WEEKS
     Route: 042
     Dates: start: 20110201, end: 20110801
  3. ANASTROZOLE [Concomitant]
     Indication: BREAST CANCER METASTATIC
  4. ZOMETA [Suspect]
     Indication: BREAST CANCER METASTATIC
     Dosage: 4 MG EVERY 4 WEEKS
     Dates: start: 20100601
  5. HERCEPTIN [Concomitant]
     Indication: BREAST CANCER METASTATIC
  6. RADIATION THERAPY [Concomitant]
     Indication: BREAST CANCER
     Dates: start: 20110801

REACTIONS (7)
  - SKIN LESION [None]
  - ALVEOLITIS [None]
  - PAIN [None]
  - OSTEOMYELITIS [None]
  - SOFT TISSUE INFECTION [None]
  - OSTEONECROSIS OF JAW [None]
  - GINGIVAL INFECTION [None]
